FAERS Safety Report 8422696-X (Version None)
Quarter: 2012Q2

REPORT INFORMATION
  Report Type: 
  Country: None (occurrence: None)
  Receive Date: 20120608
  Receipt Date: 20120529
  Transmission Date: 20120825
  Serious: Yes (Hospitalization)
  Sender: FDA-Public Use
  Company Number: FR-FRI-1000031136

PATIENT
  Age: 47 Year
  Sex: Female

DRUGS (3)
  1. CITALOPRAM HYDROBROMIDE [Suspect]
     Indication: DEPRESSION
     Dosage: 40 MG
  2. ATARAX [Concomitant]
  3. DIAZEPAM [Concomitant]

REACTIONS (2)
  - FRACTURE [None]
  - FALL [None]
